FAERS Safety Report 8143532-5 (Version None)
Quarter: 2012Q1

REPORT INFORMATION
  Report Type: 
  Country: None (occurrence: None)
  Receive Date: 20120217
  Receipt Date: 20120210
  Transmission Date: 20120608
  Serious: Yes (Death, Other)
  Sender: FDA-Public Use
  Company Number: TR-PFIZER INC-2012018199

PATIENT
  Age: 4 Month

DRUGS (1)
  1. SILDENAFIL CITRATE [Suspect]
     Dosage: 1 MG/KG, UNK

REACTIONS (4)
  - LOW CARDIAC OUTPUT SYNDROME [None]
  - HYPOTENSION [None]
  - PULMONARY HYPERTENSIVE CRISIS [None]
  - HYPOXIA [None]
